FAERS Safety Report 7637343-4 (Version None)
Quarter: 2011Q3

REPORT INFORMATION
  Report Type: 
  Country: None (occurrence: None)
  Receive Date: 20110726
  Receipt Date: 20110721
  Transmission Date: 20111222
  Serious: No
  Sender: FDA-Public Use
  Company Number: US-PFIZER INC-2011166262

PATIENT
  Sex: Male

DRUGS (1)
  1. ZOLOFT [Suspect]
     Dosage: UNK
     Dates: start: 20110324, end: 20110101

REACTIONS (3)
  - ABNORMAL DREAMS [None]
  - TESTICULAR PAIN [None]
  - EJACULATION DISORDER [None]
